APPROVED DRUG PRODUCT: ZALEPLON
Active Ingredient: ZALEPLON
Strength: 10MG
Dosage Form/Route: CAPSULE;ORAL
Application: A090374 | Product #002 | TE Code: AB
Applicant: ORBION PHARMACEUTICALS PRIVATE LTD
Approved: Sep 17, 2009 | RLD: No | RS: No | Type: RX